FAERS Safety Report 6191724-7 (Version None)
Quarter: 2009Q2

REPORT INFORMATION
  Report Type: 
  Country: None (occurrence: None)
  Receive Date: 20090515
  Receipt Date: 20090512
  Transmission Date: 20091009
  Serious: Yes (Hospitalization, Other)
  Sender: FDA-Public Use
  Company Number: BR-PFIZER INC-055-0981-M0000201

PATIENT

DRUGS (7)
  1. CITALOR [Suspect]
     Indication: DYSLIPIDAEMIA
     Dosage: 20 MG, 1X/DAY
     Route: 048
     Dates: start: 19990224, end: 20090101
  2. ATENOLOL [Concomitant]
     Dates: start: 19930101
  3. MONOCORDIL [Concomitant]
     Dates: start: 19930101
  4. NORVASC [Concomitant]
     Dates: start: 19990101
  5. SUSTRATE [Concomitant]
  6. VYTORIN [Concomitant]
     Dates: start: 20060101
  7. AAS [Concomitant]
     Dates: start: 19930101

REACTIONS (8)
  - ARTERIAL OCCLUSIVE DISEASE [None]
  - CARDIAC FAILURE [None]
  - CORONARY ARTERY BYPASS [None]
  - CORONARY ARTERY OCCLUSION [None]
  - DEAFNESS [None]
  - DRUG INEFFECTIVE [None]
  - MYOCARDIAL ISCHAEMIA [None]
  - OSTEOARTHRITIS [None]
